FAERS Safety Report 13824269 (Version 3)
Quarter: 2017Q4

REPORT INFORMATION
  Report Type: Spontaneous
  Country: JP (occurrence: JP)
  Receive Date: 20170802
  Receipt Date: 20171012
  Transmission Date: 20180320
  Serious: Yes (Other)
  Sender: FDA-Public Use
  Company Number: JP-ELI_LILLY_AND_COMPANY-JP201707011853

PATIENT
  Age: 40 Year
  Sex: Female

DRUGS (2)
  1. DULOXETINE HYDROCHLORIDE. [Suspect]
     Active Substance: DULOXETINE HYDROCHLORIDE
     Indication: HEADACHE
     Dosage: 20 MG, DAILY
     Route: 048
     Dates: start: 20170630, end: 20170704
  2. DULOXETINE HYDROCHLORIDE. [Suspect]
     Active Substance: DULOXETINE HYDROCHLORIDE
     Indication: PAIN IN JAW

REACTIONS (11)
  - Insomnia [Recovered/Resolved]
  - Irritability [Recovered/Resolved]
  - Hyperhidrosis [Recovered/Resolved]
  - Headache [Recovering/Resolving]
  - Off label use [Recovered/Resolved]
  - Somnolence [Unknown]
  - Anxiety [Recovered/Resolved]
  - Pyrexia [Recovered/Resolved]
  - Apathy [Unknown]
  - Nausea [Recovered/Resolved]
  - Chest discomfort [Unknown]

NARRATIVE: CASE EVENT DATE: 20170630
